FAERS Safety Report 7178044-9 (Version None)
Quarter: 2010Q4

REPORT INFORMATION
  Report Type: 
  Country: None (occurrence: None)
  Receive Date: 20101220
  Receipt Date: 20101210
  Transmission Date: 20110411
  Serious: Yes (Congenital Anomaly)
  Sender: FDA-Public Use
  Company Number: A0679786A

PATIENT
  Sex: Female
  Weight: 2.5 kg

DRUGS (1)
  1. PAXIL [Suspect]
     Dosage: 20MG PER DAY
     Route: 048

REACTIONS (2)
  - DRUG EXPOSURE DURING PREGNANCY [None]
  - PULMONARY ARTERY STENOSIS [None]
